FAERS Safety Report 13464162 (Version 1)
Quarter: 2017Q2

REPORT INFORMATION
  Report Type: Spontaneous
  Country: US (occurrence: US)
  Receive Date: 20170420
  Receipt Date: 20170420
  Transmission Date: 20170830
  Serious: Yes (Other)
  Sender: FDA-Public Use
  Company Number: US-ROCHE-722564

PATIENT
  Age: 19 Year
  Sex: Female
  Weight: 90.7 kg

DRUGS (9)
  1. ZOLOFT [Concomitant]
     Active Substance: SERTRALINE HYDROCHLORIDE
     Route: 065
  2. ACCUTANE [Suspect]
     Active Substance: ISOTRETINOIN
     Indication: ACNE
     Route: 048
     Dates: start: 199401, end: 199406
  3. ACCUTANE [Suspect]
     Active Substance: ISOTRETINOIN
     Dosage: 40 MG DAILY ON ODD DAYS ALTERNATING WITH 80 MG DAILY ON EVEN DAYS
     Route: 048
  4. ACCUTANE [Suspect]
     Active Substance: ISOTRETINOIN
     Route: 048
  5. ACCUTANE [Suspect]
     Active Substance: ISOTRETINOIN
     Route: 048
     Dates: start: 19941013, end: 19950305
  6. ACCUTANE [Suspect]
     Active Substance: ISOTRETINOIN
     Dosage: INCREASED TO 80 MG DAILY ALTERNATING WITH 120 MG DAILY
     Route: 048
  7. ACCUTANE [Suspect]
     Active Substance: ISOTRETINOIN
     Route: 048
  8. ACCUTANE [Suspect]
     Active Substance: ISOTRETINOIN
     Route: 048
     Dates: start: 200206, end: 200211
  9. ACCUTANE [Suspect]
     Active Substance: ISOTRETINOIN
     Dosage: DOSE DECREASED
     Route: 048
     Dates: start: 20040213, end: 20040405

REACTIONS (14)
  - Myalgia [Unknown]
  - Dry skin [Unknown]
  - Night blindness [Unknown]
  - Malaise [Recovering/Resolving]
  - Blood triglycerides increased [Recovered/Resolved]
  - Colitis ulcerative [Unknown]
  - Arthralgia [Unknown]
  - Depression [Unknown]
  - Epistaxis [Recovered/Resolved]
  - Lip dry [Unknown]
  - Blood cholesterol increased [Recovered/Resolved]
  - Dyshidrotic eczema [Unknown]
  - Gastrointestinal injury [Unknown]
  - Acne [Unknown]

NARRATIVE: CASE EVENT DATE: 19941110
